FAERS Safety Report 4651253-6 (Version None)
Quarter: 2005Q2

REPORT INFORMATION
  Report Type: 
  Country: None (occurrence: None)
  Receive Date: 20050331
  Receipt Date: 20050111
  Transmission Date: 20051028
  Serious: No
  Sender: FDA-Public Use
  Company Number: 05P-163-0285930-00

PATIENT
  Age: 40 Year
  Sex: Female
  Weight: 60.3284 kg

DRUGS (4)
  1. HUMIRA [Suspect]
     Indication: RHEUMATOID ARTHRITIS
     Dosage: 40 MG, 1 IN 2 WK, SUBCUTANEOUS
     Route: 058
     Dates: start: 20040901
  2. BUCINDOLOL HYDROCHLORIDE [Suspect]
     Indication: RHEUMATOID ARTHRITIS
     Dates: end: 20050110
  3. HYDROXYCHLOROQUINE PHOSPHATE [Concomitant]
  4. PREDNISONE TAB [Concomitant]

REACTIONS (3)
  - OEDEMA PERIPHERAL [None]
  - PAIN IN EXTREMITY [None]
  - PYREXIA [None]
